FAERS Safety Report 19807702 (Version 1)
Quarter: 2021Q3

REPORT INFORMATION
  Report Type: Spontaneous
  Country: US (occurrence: US)
  Receive Date: 20210909
  Receipt Date: 20210909
  Transmission Date: 20211014
  Serious: No
  Sender: FDA-Public Use
  Company Number: US-REGENERON PHARMACEUTICALS, INC.-2020-87271

PATIENT

DRUGS (1)
  1. PRALUENT [Suspect]
     Active Substance: ALIROCUMAB
     Indication: HYPERCHOLESTEROLAEMIA
     Dosage: 75 MG/ML, Q2W
     Route: 058
     Dates: start: 20200420

REACTIONS (5)
  - Lip dry [Unknown]
  - Product dose omission issue [Unknown]
  - Blood pressure increased [Unknown]
  - Dry throat [Unknown]
  - Dry mouth [Unknown]

NARRATIVE: CASE EVENT DATE: 202009
